FAERS Safety Report 4713022-8 (Version None)
Quarter: 2005Q3

REPORT INFORMATION
  Report Type: 
  Country: None (occurrence: None)
  Receive Date: 20050701
  Receipt Date: 20040924
  Transmission Date: 20060218
  Serious: Yes (Other)
  Sender: FDA-Public Use
  Company Number: 2004071882

PATIENT
  Sex: Female

DRUGS (4)
  1. ZOLOFT [Suspect]
     Indication: ILL-DEFINED DISORDER
     Dosage: 100 MG
  2. GEMFIROZIL (GEMFIROZIL) [Concomitant]
  3. LAMOTRIGINE [Concomitant]
  4. CLOZAPINE [Concomitant]

REACTIONS (1)
  - ANGLE CLOSURE GLAUCOMA [None]
